FAERS Safety Report 17035145 (Version 1)
Quarter: 2019Q4

REPORT INFORMATION
  Report Type: Report from Study
  Country: US (occurrence: US)
  Receive Date: 20191115
  Receipt Date: 20191115
  Transmission Date: 20200122
  Serious: Yes (Other)
  Sender: FDA-Public Use
  Company Number: US-ROCHE-2465096

PATIENT
  Sex: Female

DRUGS (2)
  1. OCREVUS [Suspect]
     Active Substance: OCRELIZUMAB
     Indication: RELAPSING-REMITTING MULTIPLE SCLEROSIS
     Dosage: 14/MAY/2018
     Route: 065
     Dates: start: 20180430
  2. OCREVUS [Suspect]
     Active Substance: OCRELIZUMAB
     Dosage: 30/OCT/2018,03/MAY/2019
     Route: 065

REACTIONS (1)
  - Cellulitis [Not Recovered/Not Resolved]
